FAERS Safety Report 14885168 (Version 2)
Quarter: 2018Q2

REPORT INFORMATION
  Report Type: Spontaneous
  Country: US (occurrence: US)
  Receive Date: 20180511
  Receipt Date: 20180621
  Transmission Date: 20180711
  Serious: No
  Sender: FDA-Public Use
  Company Number: US-009507513-1805USA004271

PATIENT
  Age: 33 Year
  Sex: Female
  Weight: 46.71 kg

DRUGS (1)
  1. NUVARING [Suspect]
     Active Substance: ETHINYL ESTRADIOL\ETONOGESTREL
     Indication: CONTRACEPTION
     Dosage: 1 RING, ^3 DAYS OUT, REST OF THE DAYS IN^ / ^3 WEEKS IN, 3 DAYS OUT OVER THE COURSE OF ONE MONTH^
     Route: 067
     Dates: start: 2017

REACTIONS (2)
  - Inappropriate schedule of drug administration [Unknown]
  - Muscle spasms [Recovered/Resolved]

NARRATIVE: CASE EVENT DATE: 2017
